FAERS Safety Report 15158876 (Version 2)
Quarter: 2018Q4

REPORT INFORMATION
  Report Type: Spontaneous
  Country: US (occurrence: US)
  Receive Date: 20180718
  Receipt Date: 20181001
  Transmission Date: 20190204
  Serious: Yes (Other)
  Sender: FDA-Public Use
  Company Number: US-BAYER-2018-134723

PATIENT
  Age: 34 Year
  Sex: Female
  Weight: 59.41 kg

DRUGS (2)
  1. MOTRIN [Concomitant]
     Active Substance: IBUPROFEN
  2. MIRENA [Suspect]
     Active Substance: LEVONORGESTREL
     Indication: CONTRACEPTION
     Dosage: 20 MCG/24HR, CONT
     Route: 015
     Dates: start: 20161006, end: 20180706

REACTIONS (5)
  - Uterine perforation [Recovered/Resolved]
  - Device difficult to use [None]
  - Post procedural haemorrhage [Recovered/Resolved]
  - Medical device site pain [None]
  - Pelvic pain [Recovered/Resolved]

NARRATIVE: CASE EVENT DATE: 20161006
